FAERS Safety Report 8523253-7 (Version None)
Quarter: 2012Q3

REPORT INFORMATION
  Report Type: 
  Country: None (occurrence: None)
  Receive Date: 20120709
  Receipt Date: 20120628
  Transmission Date: 20120928
  Serious: Yes (Other)
  Sender: FDA-Public Use
  Company Number: DSA_58249_2012

PATIENT
  Sex: Male

DRUGS (5)
  1. DILTIAZEM HCL [Suspect]
     Indication: HYPERTENSION
     Dosage: (200 MG QD ORAL)
     Route: 048
     Dates: start: 20120301, end: 20120410
  2. NICARDIPINE HCL [Concomitant]
  3. AZELASTINE HYDROCHLORIDE [Concomitant]
  4. THEO-DUR [Concomitant]
  5. ASPIRIN [Concomitant]

REACTIONS (9)
  - TACHYCARDIA [None]
  - DRUG ERUPTION [None]
  - ORAL MUCOSAL EXFOLIATION [None]
  - CHEILITIS [None]
  - GENERALISED ERYTHEMA [None]
  - ATRIAL FIBRILLATION [None]
  - PURPURA [None]
  - SKIN EXFOLIATION [None]
  - DERMATITIS EXFOLIATIVE [None]
